FAERS Safety Report 25363479 (Version 2)
Quarter: 2025Q2

REPORT INFORMATION
  Report Type: Report from Study
  Country: CN (occurrence: CN)
  Receive Date: 20250527
  Receipt Date: 20250606
  Transmission Date: 20250716
  Serious: Yes (Life-Threatening, Hospitalization)
  Sender: EISAI
  Company Number: CN-Eisai-EC-2025-189811

PATIENT
  Age: 67 Year
  Sex: Female
  Weight: 60 kg

DRUGS (25)
  1. LENVATINIB [Suspect]
     Active Substance: LENVATINIB
     Indication: Hepatocellular carcinoma
     Dates: start: 20230526, end: 20230603
  2. LENVATINIB [Suspect]
     Active Substance: LENVATINIB
     Dates: start: 20230608, end: 20230625
  3. LENVATINIB [Suspect]
     Active Substance: LENVATINIB
     Dates: start: 20230706, end: 20230801
  4. LENVATINIB [Suspect]
     Active Substance: LENVATINIB
     Dates: start: 20230804, end: 20230925
  5. LENVATINIB [Suspect]
     Active Substance: LENVATINIB
     Dates: start: 20231107, end: 20231224
  6. LENVATINIB [Suspect]
     Active Substance: LENVATINIB
     Dates: start: 20240104, end: 20240123
  7. LENVATINIB [Suspect]
     Active Substance: LENVATINIB
     Dates: start: 20240202, end: 20240206
  8. LENVATINIB [Suspect]
     Active Substance: LENVATINIB
     Dates: start: 20240307, end: 20240322
  9. LENVATINIB [Suspect]
     Active Substance: LENVATINIB
     Dates: start: 20240409, end: 20240506
  10. LENVATINIB [Suspect]
     Active Substance: LENVATINIB
     Dates: start: 20240512, end: 20240531
  11. LENVATINIB [Suspect]
     Active Substance: LENVATINIB
     Dates: start: 20240607, end: 20240728
  12. LENVATINIB [Suspect]
     Active Substance: LENVATINIB
     Dates: start: 20240808, end: 20250227
  13. DURVALUMAB [Suspect]
     Active Substance: DURVALUMAB
     Indication: Hepatocellular carcinoma
     Dates: start: 20230526, end: 20250228
  14. TREMELIMUMAB [Suspect]
     Active Substance: TREMELIMUMAB
     Indication: Hepatocellular carcinoma
     Dates: start: 20230526, end: 20230526
  15. VALSARTAN [Concomitant]
     Active Substance: VALSARTAN
  16. TENOFOVIR DISOPROXIL FUMARATE [Concomitant]
     Active Substance: TENOFOVIR DISOPROXIL FUMARATE
  17. AMLODIPINE BESYLATE\PERINDOPRIL ARGININE [Concomitant]
     Active Substance: AMLODIPINE BESYLATE\PERINDOPRIL ARGININE
  18. AMLODIPINE BESYLATE [Concomitant]
     Active Substance: AMLODIPINE BESYLATE
  19. TELMISARTAN [Concomitant]
     Active Substance: TELMISARTAN
  20. METFORMIN HYDROCHLORIDE [Concomitant]
     Active Substance: METFORMIN HYDROCHLORIDE
  21. CANAGLIFLOZIN [Concomitant]
     Active Substance: CANAGLIFLOZIN
  22. CALCITRIOL [Concomitant]
     Active Substance: CALCITRIOL
  23. CALCIUM CARBONATE [Concomitant]
     Active Substance: CALCIUM CARBONATE
  24. INSULIN NOS [Concomitant]
     Active Substance: INSULIN NOS
  25. INSULIN ASPART\INSULIN DEGLUDEC [Concomitant]
     Active Substance: INSULIN ASPART\INSULIN DEGLUDEC

REACTIONS (1)
  - Myocardial infarction [Recovered/Resolved with Sequelae]

NARRATIVE: CASE EVENT DATE: 20250414
